FAERS Safety Report 20000594 (Version 1)
Quarter: 2021Q4

REPORT INFORMATION
  Report Type: Spontaneous
  Country: US (occurrence: US)
  Receive Date: 20211025
  Receipt Date: 20211025
  Transmission Date: 20220304
  Serious: Yes (Disabling)
  Sender: FDA-Public Use
  Company Number: None

PATIENT
  Age: 61 Year
  Sex: Female
  Weight: 47.17 kg

DRUGS (10)
  1. SEPTOCAINE [Suspect]
     Active Substance: ARTICAINE HYDROCHLORIDE\EPINEPHRINE BITARTRATE
  2. GABAPENTIN [Concomitant]
     Active Substance: GABAPENTIN
  3. MAXALT [Concomitant]
     Active Substance: RIZATRIPTAN BENZOATE
  4. SINGULAIR [Concomitant]
     Active Substance: MONTELUKAST SODIUM
  5. VITAMIN B12 [Concomitant]
     Active Substance: CYANOCOBALAMIN
  6. VITAMIN D [Concomitant]
     Active Substance: VITAMIN D NOS
  7. VITAMIN K [Concomitant]
     Active Substance: PHYTONADIONE
  8. Omega-3 Plus [Concomitant]
  9. MAGNESIUM [Concomitant]
     Active Substance: MAGNESIUM
  10. VITAMINS [Concomitant]
     Active Substance: VITAMINS

REACTIONS (8)
  - Nerve injury [None]
  - Hypoaesthesia oral [None]
  - Taste disorder [None]
  - Oral discomfort [None]
  - Pain [None]
  - Paraesthesia [None]
  - Eating disorder [None]
  - Weight decreased [None]

NARRATIVE: CASE EVENT DATE: 20200813
